FAERS Safety Report 9290968 (Version 2)
Quarter: 2013Q3

REPORT INFORMATION
  Report Type: Spontaneous
  Country: US (occurrence: US)
  Receive Date: 20130515
  Receipt Date: 20130801
  Transmission Date: 20140515
  Serious: Yes (Death)
  Sender: FDA-Public Use
  Company Number: US-CELGENEUS-163-21880-13051725

PATIENT
  Age: 46 Year
  Sex: Male

DRUGS (2)
  1. REVLIMID [Suspect]
     Indication: PLASMA CELL MYELOMA
     Dosage: 5 MILLIGRAM
     Route: 048
     Dates: start: 20130130, end: 201304
  2. DEXAMETHASONE [Concomitant]
     Indication: NAUSEA
     Route: 065
     Dates: start: 20130130, end: 201304

REACTIONS (1)
  - Acute myocardial infarction [Fatal]
